FAERS Safety Report 7326783-9 (Version None)
Quarter: 2011Q1

REPORT INFORMATION
  Report Type: 
  Country: None (occurrence: None)
  Receive Date: 20110302
  Receipt Date: 20100628
  Transmission Date: 20110831
  Serious: No
  Sender: FDA-Public Use
  Company Number: US-PFIZER INC-2010081168

PATIENT
  Sex: Male
  Weight: 70.295 kg

DRUGS (2)
  1. DILANTIN [Suspect]
     Indication: CONVULSION
     Dosage: 100 MG, 5X/DAY
     Route: 048
     Dates: start: 19930101
  2. NEURONTIN [Suspect]
     Indication: CONVULSION
     Dosage: 600 MG, 6X/DAY
     Route: 048
     Dates: start: 19980101

REACTIONS (3)
  - DRUG DOSE OMISSION [None]
  - MALAISE [None]
  - BLOOD CHOLESTEROL INCREASED [None]
